FAERS Safety Report 13297635 (Version 1)
Quarter: 2017Q1

REPORT INFORMATION
  Report Type: Spontaneous
  Country: US (occurrence: US)
  Receive Date: 20170306
  Receipt Date: 20170306
  Transmission Date: 20170428
  Serious: Yes (Other)
  Sender: FDA-Public Use
  Company Number: US-PFIZER INC-2017091835

PATIENT
  Age: 81 Year
  Sex: Male

DRUGS (8)
  1. TOVIAZ [Suspect]
     Active Substance: FESOTERODINE FUMARATE
     Indication: MICTURITION URGENCY
     Dosage: 4 MG, UNK
     Route: 048
  2. STRIVERDI RESPIMAT [Concomitant]
     Active Substance: OLODATEROL HYDROCHLORIDE
     Indication: DYSPNOEA
     Dosage: 2 DF, 1X/DAY (MORNING)
  3. COUMADIN [Suspect]
     Active Substance: WARFARIN SODIUM
     Dosage: UNK
  4. PROVENTIL [Concomitant]
     Active Substance: ALBUTEROL
     Indication: EXPOSURE TO CHEMICAL POLLUTION
     Dosage: 2 DF, EVERY 4 HOURS AS NEEDED
  5. VITAMIN B COMPLEX [Concomitant]
     Active Substance: CYANOCOBALAMIN\DEXPANTHENOL\NIACINAMIDE\PYRIDOXINE HYDROCHLORIDE\RIBOFLAVIN 5^-PHOSPHATE SODIUM\THIAMINE HYDROCHLORIDE\VITAMIN B COMPLEX
     Dosage: UNK
  6. TOPAMAX [Concomitant]
     Active Substance: TOPIRAMATE
     Dosage: 150 MG, DAILY (50 MG IN THE MORNING AND 100 MG AT NIGHT)
  7. PROVENTIL [Concomitant]
     Active Substance: ALBUTEROL
     Indication: EMPHYSEMA
  8. TOPAMAX [Concomitant]
     Active Substance: TOPIRAMATE
     Indication: SEIZURE
     Dosage: 150 MG, DAILY (50 MG IN THE MORNING AND 100 MG AT NIGHT)

REACTIONS (3)
  - Chromaturia [Unknown]
  - Dry mouth [Unknown]
  - Urinary retention [Unknown]

NARRATIVE: CASE EVENT DATE: 20170227
